FAERS Safety Report 4281936-1 (Version None)
Quarter: 2004Q1

REPORT INFORMATION
  Report Type: 
  Country: None (occurrence: None)
  Receive Date: 20040127
  Receipt Date: 20040116
  Transmission Date: 20041129
  Serious: Yes (Hospitalization)
  Sender: FDA-Public Use
  Company Number: HQWYE622115DEC03

PATIENT
  Age: 69 Year
  Sex: Female
  Weight: 86.7 kg

DRUGS (12)
  1. MYLOTARG [Suspect]
     Indication: ACUTE MYELOID LEUKAEMIA
     Dosage: SEE IMAGE
     Route: 042
     Dates: start: 20031111, end: 20031111
  2. MYLOTARG [Suspect]
     Indication: ACUTE MYELOID LEUKAEMIA
     Dosage: SEE IMAGE
     Route: 042
     Dates: start: 20031125, end: 20031125
  3. FAMVIR [Concomitant]
  4. CIPROFLOXACIN [Concomitant]
  5. PREMARIN [Concomitant]
  6. TRIAMTERENE AND HYDROCHLOROTHIAZID ^HARRIS^ (HYDROCHLOROTHIAZIDE/TRIAM [Concomitant]
  7. SINGULAIR [Concomitant]
  8. SEREVENT [Concomitant]
  9. AZMACORT [Concomitant]
  10. VITAMIN C (ASCORBIC ACID) [Concomitant]
  11. FUROSEMIDE [Concomitant]
  12. MYLANTA (ALUMINIUM HYDROXIDE GEL, DRIED/DIMETICONE, ACTIVATED MAGNESIU [Concomitant]

REACTIONS (10)
  - ABDOMINAL PAIN UPPER [None]
  - CATHETER RELATED INFECTION [None]
  - CHILLS [None]
  - FEBRILE NEUTROPENIA [None]
  - HAEMATOCRIT DECREASED [None]
  - HAEMOGLOBIN DECREASED [None]
  - ORAL CANDIDIASIS [None]
  - PHARYNGOLARYNGEAL PAIN [None]
  - PLATELET COUNT DECREASED [None]
  - STAPHYLOCOCCAL SEPSIS [None]
